FAERS Safety Report 7526137-6 (Version None)
Quarter: 2011Q2

REPORT INFORMATION
  Report Type: 
  Country: None (occurrence: None)
  Receive Date: 20110603
  Receipt Date: 20110603
  Transmission Date: 20111010
  Serious: Yes (Hospitalization)
  Sender: FDA-Public Use
  Company Number: None

PATIENT
  Sex: Male
  Weight: 66.9 kg

DRUGS (7)
  1. DILAUDID [Concomitant]
  2. COMPAZINE [Concomitant]
  3. DEXAMETHASONE [Concomitant]
  4. ETOPOSIDE [Suspect]
     Dosage: 564 MG
     Dates: end: 20110520
  5. EMEND [Concomitant]
  6. CISPLATIN [Suspect]
     Dosage: 140.3 MG
     Dates: end: 20110518
  7. MS CONTIN [Concomitant]

REACTIONS (8)
  - PLATELET COUNT DECREASED [None]
  - DECREASED APPETITE [None]
  - ATRIAL FIBRILLATION [None]
  - NAUSEA [None]
  - VOMITING [None]
  - CONFUSIONAL STATE [None]
  - NEUTROPHIL COUNT DECREASED [None]
  - WHITE BLOOD CELL COUNT DECREASED [None]
